FAERS Safety Report 5669211-1 (Version None)
Quarter: 2008Q1

REPORT INFORMATION
  Report Type: 
  Country: None (occurrence: None)
  Receive Date: 20080312
  Receipt Date: 20080312
  Transmission Date: 20080703
  Serious: Yes (Other)
  Sender: FDA-Public Use
  Company Number: None

PATIENT
  Age: 56 Year
  Sex: Female
  Weight: 72.4 kg

DRUGS (7)
  1. ACETAMINOPHEN AND TRAMADOL HCL [Suspect]
     Indication: PAIN
     Dosage: 37.5/325 PRN PO
     Route: 048
  2. HYDROCODONE/ACETAMINOPHEN UNKNOWN [Suspect]
     Indication: PAIN
     Dosage: PRN PO
     Route: 048
  3. FOLIC ACID [Concomitant]
  4. LEVOTHYROXINE SODIUM [Concomitant]
  5. LIDODERM [Concomitant]
  6. LORAZEPAM [Concomitant]
  7. MULTIVITAMIN [Concomitant]

REACTIONS (3)
  - FALL [None]
  - HEPATOTOXICITY [None]
  - SPINAL COMPRESSION FRACTURE [None]
